FAERS Safety Report 5392388-2 (Version None)
Quarter: 2007Q3

REPORT INFORMATION
  Report Type: 
  Country: None (occurrence: None)
  Receive Date: 20070720
  Receipt Date: 20070713
  Transmission Date: 20080115
  Serious: Yes (Death, Hospitalization)
  Sender: FDA-Public Use
  Company Number: A0665103A

PATIENT
  Age: 71 Year
  Sex: Male

DRUGS (11)
  1. SERETIDE [Suspect]
     Dates: start: 20070410, end: 20070701
  2. CRATAEGUS + PASSION FLOWER [Concomitant]
     Dates: start: 20050101, end: 20070701
  3. PRELONE [Concomitant]
     Dates: start: 20050101, end: 20070701
  4. RITMONORM [Concomitant]
     Dates: start: 20050101, end: 20070701
  5. FUROSEMIDE [Concomitant]
     Dates: start: 20050101, end: 20070701
  6. ENALAPRIL MALEATE [Concomitant]
     Dates: start: 20050101, end: 20070701
  7. IPRATROPIUM BROMIDE [Concomitant]
     Dates: start: 20050101, end: 20070701
  8. FENOTEROL HYDROBROMIDE [Concomitant]
     Dates: start: 20050101, end: 20070701
  9. NIMESULIDE [Concomitant]
     Dates: start: 20050101, end: 20070701
  10. ACETAMINOPHEN [Concomitant]
     Dates: start: 20050101, end: 20070701
  11. VALERIAN [Concomitant]
     Dates: start: 20050101, end: 20070701

REACTIONS (1)
  - DEATH [None]
